FAERS Safety Report 5466217-2 (Version None)
Quarter: 2007Q3

REPORT INFORMATION
  Report Type: 
  Country: None (occurrence: None)
  Receive Date: 20070919
  Receipt Date: 20070904
  Transmission Date: 20080115
  Serious: Yes (Death)
  Sender: FDA-Public Use
  Company Number: 2007RR-09829

PATIENT
  Age: 81 Year
  Sex: Male

DRUGS (6)
  1. LISINOPRIL [Suspect]
  2. ASPIRIN [Concomitant]
  3. CALCICHEW (CALCIUM CARBONATE) [Concomitant]
  4. INDAPAMINE (INDAPAMINE) [Concomitant]
  5. METFORMIN TABLETS (METFORMIN HYDROCHLORIDE) [Concomitant]
  6. TOLBUTAMIDE [Concomitant]

REACTIONS (4)
  - ANAPHYLACTIC SHOCK [None]
  - CARDIO-RESPIRATORY ARREST [None]
  - ELECTROMECHANICAL DISSOCIATION [None]
  - FALL [None]
